FAERS Safety Report 18305669 (Version 2)
Quarter: 2020Q4

REPORT INFORMATION
  Report Type: Spontaneous
  Country: IT (occurrence: IT)
  Receive Date: 20200924
  Receipt Date: 20201013
  Transmission Date: 20210113
  Serious: Yes (Hospitalization, Other)
  Sender: FDA-Public Use
  Company Number: IT-CELLTRION INC.-2020IT027671

PATIENT

DRUGS (6)
  1. PENTACOL [Concomitant]
     Active Substance: MESALAMINE
     Indication: COLITIS ULCERATIVE
  2. DELTACORTENE [Concomitant]
     Active Substance: PREDNISONE
     Indication: COLITIS ULCERATIVE
  3. REMSIMA [Suspect]
     Active Substance: INFLIXIMAB
     Indication: COLITIS ULCERATIVE
     Dosage: UNK, 1ST CYCLE
     Route: 042
  4. REMSIMA [Suspect]
     Active Substance: INFLIXIMAB
     Dosage: UNK, 2ND CYCLE
     Route: 042
  5. REMSIMA [Suspect]
     Active Substance: INFLIXIMAB
     Dosage: UNK, 3RD CYCLE
     Route: 042
     Dates: start: 20200710
  6. ASACOL [Concomitant]
     Active Substance: MESALAMINE
     Indication: COLITIS ULCERATIVE

REACTIONS (7)
  - Dyspnoea [Not Recovered/Not Resolved]
  - Hypoxia [Unknown]
  - Respiratory failure [Unknown]
  - Ill-defined disorder [Unknown]
  - Eosinophilic pneumonia [Unknown]
  - Dyspnoea [Not Recovered/Not Resolved]
  - Asthenia [Unknown]

NARRATIVE: CASE EVENT DATE: 202007
